FAERS Safety Report 6689992-8 (Version None)
Quarter: 2010Q2

REPORT INFORMATION
  Report Type: 
  Country: None (occurrence: None)
  Receive Date: 20100421
  Receipt Date: 20100409
  Transmission Date: 20101027
  Serious: Yes (Hospitalization)
  Sender: FDA-Public Use
  Company Number: PHHO2010BE05395

PATIENT
  Sex: Female

DRUGS (2)
  1. CGS 20267 T30748+TAB [Suspect]
     Indication: BREAST CANCER
     Dosage: 2.5MG PER DAY
     Route: 048
     Dates: start: 20050404
  2. ZOMETA [Suspect]
     Indication: BREAST CANCER
     Dosage: 4MG EVERY 6 MONTHS
     Route: 042
     Dates: start: 20050401, end: 20090409

REACTIONS (3)
  - ACUTE RESPIRATORY FAILURE [None]
  - PULMONARY OEDEMA [None]
  - RENAL FAILURE CHRONIC [None]
